FAERS Safety Report 8801977 (Version 3)
Quarter: 2013Q2

REPORT INFORMATION
  Report Type: Spontaneous
  Country: US (occurrence: US)
  Receive Date: 20120921
  Receipt Date: 20130417
  Transmission Date: 20140414
  Serious: Yes (Hospitalization)
  Sender: FDA-Public Use
  Company Number: US-US-EMD SERONO, INC.-7161639

PATIENT
  Age: 37 Year
  Sex: Female
  Weight: 79 kg

DRUGS (1)
  1. REBIF [Suspect]
     Indication: MULTIPLE SCLEROSIS
     Route: 058
     Dates: start: 20090303

REACTIONS (2)
  - Cystitis [Recovered/Resolved]
  - Urinary tract infection [Recovered/Resolved]
